FAERS Safety Report 23235522 (Version 2)
Quarter: 2024Q1

REPORT INFORMATION
  Report Type: Spontaneous
  Country: SI (occurrence: SI)
  Receive Date: 20231128
  Receipt Date: 20240108
  Transmission Date: 20240410
  Serious: Yes (Other)
  Sender: FDA-Public Use
  Company Number: SI-009507513-2309SVN004186

PATIENT
  Sex: Female

DRUGS (7)
  1. PACLITAXEL [Suspect]
     Active Substance: PACLITAXEL
     Indication: Triple negative breast cancer
     Dosage: UNK?THERAPY START DATE: 14-MAR-2023
     Dates: end: 2023
  2. CARBOPLATIN [Suspect]
     Active Substance: CARBOPLATIN
     Indication: Triple negative breast cancer
     Dosage: UNK
     Dates: end: 2023
  3. KEYTRUDA [Suspect]
     Active Substance: PEMBROLIZUMAB
     Indication: Triple negative breast cancer
     Dosage: 200 MILLIGRAM, Q3W?FORM OF ADMIN. SOLUTION FOR INJECTION
     Dates: start: 2023, end: 20231012
  4. KEYTRUDA [Suspect]
     Active Substance: PEMBROLIZUMAB
     Dosage: 200 MILLIGRAM, Q3W?FORM OF ADMIN. SOLUTION FOR INJECTION
     Dates: start: 20230314, end: 20230606
  5. KEYTRUDA [Suspect]
     Active Substance: PEMBROLIZUMAB
     Dosage: UNK?FORM OF ADMIN. SOLUTION FOR INJECTION
     Dates: end: 2023
  6. HYDROCHLOROTHIAZIDE\IRBESARTAN [Concomitant]
     Active Substance: HYDROCHLOROTHIAZIDE\IRBESARTAN
     Indication: Product used for unknown indication
  7. VITAMIN D NOS [Concomitant]
     Active Substance: VITAMIN D NOS
     Indication: Product used for unknown indication

REACTIONS (24)
  - Neutropenia [Recovered/Resolved]
  - Hypokalaemia [Unknown]
  - Encephalitis [Unknown]
  - Adrenal insufficiency [Unknown]
  - Tremor [Unknown]
  - Vomiting [Unknown]
  - Chills [Unknown]
  - Apathy [Unknown]
  - Depressed mood [Unknown]
  - Somnolence [Unknown]
  - Decreased appetite [Unknown]
  - Weight decreased [Unknown]
  - Malaise [Unknown]
  - Alanine aminotransferase increased [Unknown]
  - Hyporeflexia [Unknown]
  - Confusional state [Unknown]
  - Aspartate aminotransferase increased [Unknown]
  - Disorientation [Unknown]
  - Glabellar reflex abnormal [Unknown]
  - Anaemia [Unknown]
  - Eye movement disorder [Unknown]
  - Hypophysitis [Unknown]
  - Secondary adrenocortical insufficiency [Unknown]
  - Immune-mediated adverse reaction [Unknown]

NARRATIVE: CASE EVENT DATE: 20230101
